FAERS Safety Report 23443194 (Version 1)
Quarter: 2024Q1

REPORT INFORMATION
  Report Type: Spontaneous
  Country: US (occurrence: US)
  Receive Date: 20240125
  Receipt Date: 20240125
  Transmission Date: 20240410
  Serious: No
  Sender: FDA-Public Use
  Company Number: US-SA-SAC20240119000312

PATIENT
  Age: 59 Year
  Sex: Female
  Weight: 113.39 kg

DRUGS (9)
  1. DUPIXENT [Suspect]
     Active Substance: DUPILUMAB
     Indication: Dermatitis atopic
     Dosage: 300 MG, QOW
     Route: 058
     Dates: start: 202309
  2. NYSTATIN [Suspect]
     Active Substance: NYSTATIN
     Indication: Fungal infection
     Dosage: UNK
  3. AQUAPHOR ITCH RELIEF [Concomitant]
     Active Substance: HYDROCORTISONE
     Dosage: UNK
  4. TACROLIMUS [Concomitant]
     Active Substance: TACROLIMUS
     Dosage: UNK
  5. BIOTIN [Concomitant]
     Active Substance: BIOTIN
     Dosage: UNK
  6. IRON [Concomitant]
     Active Substance: IRON
     Dosage: UNK
  7. OLMESARTAN MEDOXOMIL [Concomitant]
     Active Substance: OLMESARTAN MEDOXOMIL
     Dosage: UNK
  8. CEPHALEXIN [Concomitant]
     Active Substance: CEPHALEXIN
     Dosage: UNK
  9. ALIVE! WOMEN^S 50+ COMPLETE MULTIVITAMIN [Concomitant]
     Dosage: UNK

REACTIONS (7)
  - Fungal infection [Unknown]
  - Dry skin [Unknown]
  - Epigastric discomfort [Unknown]
  - Pruritus [Unknown]
  - Eye irritation [Unknown]
  - Drug hypersensitivity [Unknown]
  - Skin discolouration [Unknown]
